FAERS Safety Report 5256727-5 (Version None)
Quarter: 2007Q1

REPORT INFORMATION
  Report Type: 
  Country: None (occurrence: None)
  Receive Date: 20070306
  Receipt Date: 20070222
  Transmission Date: 20070707
  Serious: Yes (Hospitalization)
  Sender: FDA-Public Use
  Company Number: JP-PFIZER INC-2007014688

PATIENT
  Age: 80 Year
  Sex: Male

DRUGS (7)
  1. ZITHROMAC [Suspect]
     Indication: PYREXIA
     Dosage: DAILY DOSE:500MG
     Route: 048
     Dates: start: 20070122, end: 20070123
  2. DALACIN S [Suspect]
     Indication: PYREXIA
     Dosage: DAILY DOSE:600MG
     Route: 042
     Dates: start: 20070124, end: 20070124
  3. LOXOPROFEN SODIUM [Suspect]
     Route: 048
  4. OLMETEC [Concomitant]
     Indication: HYPERTENSION
     Dosage: DAILY DOSE:20MG
     Route: 048
  5. TICLOPIDINE HCL [Concomitant]
     Indication: ANGINA PECTORIS
     Dosage: DAILY DOSE:100MG
     Route: 048
  6. EPADEL [Concomitant]
     Route: 048
  7. VOLTAREN [Concomitant]
     Dosage: DAILY DOSE:25MG
     Route: 054

REACTIONS (1)
  - STEVENS-JOHNSON SYNDROME [None]
